FAERS Safety Report 6567193-1 (Version None)
Quarter: 2010Q1

REPORT INFORMATION
  Report Type: 
  Country: None (occurrence: None)
  Receive Date: 20100202
  Receipt Date: 20100126
  Transmission Date: 20100710
  Serious: Yes (Hospitalization, Other)
  Sender: FDA-Public Use
  Company Number: BR-SANOFI-AVENTIS-2010SA005272

PATIENT
  Sex: Male
  Weight: 77 kg

DRUGS (14)
  1. LANTUS [Suspect]
     Indication: TYPE 2 DIABETES MELLITUS
     Route: 058
     Dates: end: 20100126
  2. AUTOPEN 24 [Suspect]
  3. HUMALOG [Concomitant]
     Indication: TYPE 2 DIABETES MELLITUS
     Dosage: WHEN GLYCEMIA IS ABOVE 150
     Route: 058
  4. SUSTRATE [Concomitant]
     Dosage: 3 TABLETS
     Route: 048
  5. LASIX [Concomitant]
     Route: 048
  6. DIGOXIN [Concomitant]
     Route: 048
  7. ALDACTONE [Concomitant]
     Dosage: 1 TABLET
     Route: 048
  8. CLOPIDOGREL [Concomitant]
     Route: 048
  9. ATORVASTATIN CALCIUM [Concomitant]
     Route: 048
  10. PANTOPRAZOLE [Concomitant]
     Route: 048
  11. MICARDIS [Concomitant]
     Dosage: 1/2 TABLET
     Route: 048
  12. CILOSTAZOL [Concomitant]
     Route: 048
  13. GLUCOBAY [Concomitant]
     Dosage: 3 TABLETS
     Route: 048
  14. ASPIRIN [Concomitant]
     Route: 048

REACTIONS (1)
  - CEREBROVASCULAR ACCIDENT [None]
